FAERS Safety Report 9680119 (Version 2)
Quarter: 2013Q4

REPORT INFORMATION
  Report Type: Spontaneous
  Country: FR (occurrence: FR)
  Receive Date: 20131111
  Receipt Date: 20131121
  Transmission Date: 20140711
  Serious: Yes (Other)
  Sender: FDA-Public Use
  Company Number: FR-JNJFOC-20131019875

PATIENT
  Age: 55 Year
  Sex: Female

DRUGS (13)
  1. ACTIFED RHUME [Suspect]
     Route: 048
  2. ACTIFED RHUME [Suspect]
     Indication: PRODUCT USED FOR UNKNOWN INDICATION
     Route: 048
  3. ACTIFEDDUO [Suspect]
     Route: 065
  4. ACTIFEDDUO [Suspect]
     Indication: PRODUCT USED FOR UNKNOWN INDICATION
     Route: 065
  5. ACTIFED JOUR ET NUIT [Suspect]
     Route: 065
  6. ACTIFED JOUR ET NUIT [Suspect]
     Indication: PRODUCT USED FOR UNKNOWN INDICATION
     Route: 065
  7. PONDERAL [Suspect]
     Indication: WEIGHT LOSS DIET
     Route: 048
  8. MODERATAN [Concomitant]
     Indication: WEIGHT LOSS DIET
     Route: 048
  9. PREFAMONE [Suspect]
     Indication: WEIGHT LOSS DIET
     Route: 048
  10. TENUATE DOSPAN [Suspect]
     Indication: WEIGHT LOSS DIET
     Route: 048
  11. DININTEL [Suspect]
     Indication: WEIGHT LOSS DIET
     Route: 048
  12. FENPROPOREX [Suspect]
     Indication: WEIGHT LOSS DIET
     Route: 048
  13. RHINAMIDE [Suspect]
     Indication: PRODUCT USED FOR UNKNOWN INDICATION
     Route: 045

REACTIONS (1)
  - Pulmonary arterial hypertension [Not Recovered/Not Resolved]
